FAERS Safety Report 14691238 (Version 1)
Quarter: 2018Q1

REPORT INFORMATION
  Report Type: Spontaneous
  Country: US (occurrence: US)
  Receive Date: 20180327
  Receipt Date: 20180327
  Transmission Date: 20180509
  Serious: Yes (Hospitalization)
  Sender: FDA-Public Use
  Company Number: None

PATIENT
  Age: 44 Year
  Sex: Female
  Weight: 154.9 kg

DRUGS (1)
  1. ASPIRIN. [Suspect]
     Active Substance: ASPIRIN
     Dates: end: 20180315

REACTIONS (8)
  - Fall [None]
  - Neck pain [None]
  - Headache [None]
  - Vomiting [None]
  - Head injury [None]
  - Nausea [None]
  - Subarachnoid haemorrhage [None]
  - Subdural haemorrhage [None]

NARRATIVE: CASE EVENT DATE: 20180315
